FAERS Safety Report 10967745 (Version 1)
Quarter: 2015Q1

REPORT INFORMATION
  Report Type: Spontaneous
  Country: US (occurrence: None)
  Receive Date: 20150226
  Receipt Date: 20150226
  Transmission Date: 20150721
  Serious: No
  Sender: FDA-Public Use
  Company Number: TPA2010A04793

PATIENT
  Age: 81 Year
  Sex: Male
  Weight: 75.75 kg

DRUGS (9)
  1. LOPRESSOR [Concomitant]
     Active Substance: METOPROLOL TARTRATE
  2. ASPIRIN (ACETYLSALICYLIC ACID) [Concomitant]
     Active Substance: ASPIRIN
  3. ULORIC [Suspect]
     Active Substance: FEBUXOSTAT
     Indication: BLOOD URIC ACID INCREASED
     Route: 048
     Dates: start: 20100815, end: 20100828
  4. ULORIC [Suspect]
     Active Substance: FEBUXOSTAT
     Indication: GOUT
     Route: 048
     Dates: start: 20100815, end: 20100828
  5. NITROGLYCERIN PATCH (GLYCERYL TRINITRATE) [Concomitant]
  6. ZOCOR [Concomitant]
     Active Substance: SIMVASTATIN
  7. SPIRONOLACTONE (SPIRONOLACTONE) [Concomitant]
     Active Substance: SPIRONOLACTONE
  8. COUMADIN [Concomitant]
     Active Substance: WARFARIN SODIUM
  9. LEVOTHROID (LEVOTHYROXINE SODIUM) [Concomitant]

REACTIONS (6)
  - Ocular hyperaemia [None]
  - Fatigue [None]
  - Vomiting [None]
  - Asthenia [None]
  - Nausea [None]
  - Decreased appetite [None]

NARRATIVE: CASE EVENT DATE: 201008
